FAERS Safety Report 10078994 (Version 2)
Quarter: 2014Q2

REPORT INFORMATION
  Report Type: Report from Study
  Country: JP (occurrence: JP)
  Receive Date: 20140415
  Receipt Date: 20140617
  Transmission Date: 20141212
  Serious: Yes (Hospitalization)
  Sender: FDA-Public Use
  Company Number: JP-BAYER-2014-054477

PATIENT
  Age: 84 Year
  Sex: Female
  Weight: 63 kg

DRUGS (9)
  1. XARELTO [Suspect]
     Indication: CEREBROVASCULAR ACCIDENT PROPHYLAXIS
     Dosage: 10 MG, QD
     Route: 048
     Dates: start: 20130521, end: 20130912
  2. XARELTO [Interacting]
     Indication: THROMBOSIS PROPHYLAXIS
  3. XARELTO [Interacting]
     Indication: ATRIAL FIBRILLATION
  4. BAYASPIRIN [Interacting]
     Indication: PROPHYLAXIS
     Dosage: DAILY DOSE 100 MG
     Route: 048
     Dates: end: 20130911
  5. BASEN [Concomitant]
     Dosage: 0.9 MG, QD
     Route: 048
  6. MEVALOTIN [Concomitant]
     Dosage: 10 MG, QD
     Route: 048
  7. AMARYL [Concomitant]
     Dosage: 0.5 MG, QD
     Route: 048
  8. GALENIC /HYDROCHLOROTHIAZIDE/VALSARTAN/ [Concomitant]
     Dosage: 1 DF, QD
     Route: 048
  9. FRANDOL [Concomitant]
     Dosage: 40 MG, QD
     Route: 062

REACTIONS (2)
  - Haemorrhagic cerebral infarction [Recovered/Resolved with Sequelae]
  - Drug interaction [None]
